FAERS Safety Report 18957749 (Version 1)
Quarter: 2021Q1

REPORT INFORMATION
  Report Type: Spontaneous
  Country: GB (occurrence: GB)
  Receive Date: 20210302
  Receipt Date: 20210302
  Transmission Date: 20210420
  Serious: Yes (Other)
  Sender: FDA-Public Use
  Company Number: GB-009507513-2103GBR000101

PATIENT
  Age: 54 Year
  Sex: Male
  Weight: 71 kg

DRUGS (26)
  1. ATORVASTATIN [Concomitant]
     Active Substance: ATORVASTATIN
     Dosage: TAKE ONE AT NIGHT
     Dates: start: 20200616
  2. DOXYCYCLINE. [Concomitant]
     Active Substance: DOXYCYCLINE
     Dosage: 1 CAPSULE
     Dates: start: 20201218, end: 20201225
  3. METRONIDAZOLE. [Concomitant]
     Active Substance: METRONIDAZOLE
     Dosage: 1 TABLET
     Dates: start: 20201217, end: 20201224
  4. TRAMADOL HYDROCHLORIDE. [Concomitant]
     Active Substance: TRAMADOL HYDROCHLORIDE
     Dosage: 2 TABLET
     Dates: start: 20200616
  5. ZEROCREAM [Concomitant]
     Dosage: APPLY AFTER WASHING OR BATHING AND AS DIRECTED
     Dates: start: 20200810
  6. ACETAMINOPHEN. [Concomitant]
     Active Substance: ACETAMINOPHEN
     Dosage: 2 TABLET
     Dates: start: 20201215, end: 20210108
  7. SITAGLIPTIN PHOSPHATE [Suspect]
     Active Substance: SITAGLIPTIN PHOSPHATE
     Dosage: 25 MILLIGRAM, UNK
     Route: 048
     Dates: start: 20210225
  8. CHLORPHENIRAMINE. [Concomitant]
     Active Substance: CHLORPHENIRAMINE
     Dosage: 8 MIG
     Dates: start: 20200616
  9. JEXT [Concomitant]
     Active Substance: EPINEPHRINE BITARTRATE
     Dosage: 1 SINGLE?USE DEVICE
     Dates: start: 20200810
  10. OMEPRAZOLE. [Concomitant]
     Active Substance: OMEPRAZOLE
     Dosage: 1 CAPSULE
     Dates: start: 20210219
  11. ALBUTEROL. [Concomitant]
     Active Substance: ALBUTEROL
     Dosage: INHALE 2 DOSES AS NEEDED
     Dates: start: 20200616
  12. HYDROCORTISONE. [Concomitant]
     Active Substance: HYDROCORTISONE
     Dosage: 1 APPLICATION
     Dates: start: 20201127, end: 20201207
  13. TAMSULOSIN HYDROCHLORIDE. [Concomitant]
     Active Substance: TAMSULOSIN HYDROCHLORIDE
     Dosage: 1 TABLET
     Dates: start: 20210206
  14. SITAGLIPTIN PHOSPHATE [Suspect]
     Active Substance: SITAGLIPTIN PHOSPHATE
     Dosage: UNK
     Route: 048
     Dates: start: 20201106
  15. EPIPEN [Concomitant]
     Active Substance: EPINEPHRINE
     Dosage: USE AS DIRECTED
     Dates: start: 20200616
  16. LOPERAMIDE [Concomitant]
     Active Substance: LOPERAMIDE
     Dosage: 1?2 CAPSULE
     Dates: start: 20201216, end: 20210218
  17. BECLOMETHASONE DIPROPIONATE [Concomitant]
     Active Substance: BECLOMETHASONE DIPROPIONATE
     Dosage: 1 SPRAY
     Dates: start: 20201106
  18. PREGABALIN. [Concomitant]
     Active Substance: PREGABALIN
     Dosage: TAKE ONE TWICE DAILY
     Dates: start: 20200616
  19. RAMIPRIL. [Concomitant]
     Active Substance: RAMIPRIL
     Dosage: **ANNUAL BLOOD TEST**
     Dates: start: 20200616
  20. LANSOPRAZOLE. [Concomitant]
     Active Substance: LANSOPRAZOLE
     Dosage: TAKE ONE CAPSULE DAILY
     Dates: start: 20201006
  21. PROCHLORPERAZINE. [Concomitant]
     Active Substance: PROCHLORPERAZINE
     Dosage: 1?2 TABLET
     Dates: start: 20201216, end: 20210218
  22. SUKKARTO [Concomitant]
     Active Substance: METFORMIN HYDROCHLORIDE
     Dosage: TAKE 1 TWICE A DAY
     Dates: start: 20200616
  23. CLOPIDOGREL [Concomitant]
     Active Substance: CLOPIDOGREL BISULFATE
     Dosage: TAKE ONE ONCE DAILY
     Dates: start: 20200616
  24. GLICLAZIDE [Concomitant]
     Active Substance: GLICLAZIDE
     Dosage: 2 TABLET
     Dates: start: 20200616
  25. METFORMIN [Concomitant]
     Active Substance: METFORMIN HYDROCHLORIDE
     Dosage: 2 TABLET
     Dates: start: 20200921
  26. SYMBICORT [Concomitant]
     Active Substance: BUDESONIDE\FORMOTEROL FUMARATE DIHYDRATE
     Dosage: USE AS DIRECTED
     Dates: start: 20200616

REACTIONS (3)
  - Nausea [Unknown]
  - Choking sensation [Unknown]
  - Vomiting [Recovered/Resolved]

NARRATIVE: CASE EVENT DATE: 20210217
